FAERS Safety Report 5760895-6 (Version None)
Quarter: 2008Q2

REPORT INFORMATION
  Report Type: 
  Country: None (occurrence: None)
  Receive Date: 20080606
  Receipt Date: 20080225
  Transmission Date: 20081010
  Serious: No
  Sender: FDA-Public Use
  Company Number: US-ASTRAZENECA-2008UW03931

PATIENT
  Sex: Female

DRUGS (9)
  1. PRILOSEC [Suspect]
     Indication: GASTROOESOPHAGEAL REFLUX DISEASE
     Route: 048
  2. NEXIUM [Concomitant]
     Route: 048
  3. HUMARAD [Concomitant]
  4. METHOTREXATE [Concomitant]
  5. AMLODIPINE [Concomitant]
  6. FOLIC ACID [Concomitant]
  7. PRAVASTATIN [Concomitant]
  8. AVAPRO [Concomitant]
  9. LUMIGAN [Concomitant]

REACTIONS (2)
  - BURN OESOPHAGEAL [None]
  - FOREIGN BODY TRAUMA [None]
